FAERS Safety Report 7090141-5 (Version None)
Quarter: 2010Q4

REPORT INFORMATION
  Report Type: 
  Country: None (occurrence: None)
  Receive Date: 20101105
  Receipt Date: 20101105
  Transmission Date: 20110411
  Serious: Yes (Disabling, Other)
  Sender: FDA-Public Use
  Company Number: None

PATIENT
  Sex: Male
  Weight: 99.7913 kg

DRUGS (1)
  1. SEROQUEL [Suspect]
     Indication: BIPOLAR DISORDER
     Dosage: 50 MG 1X DAILY PILL FOR 3 WEEKS
     Dates: start: 20090801, end: 20090821

REACTIONS (7)
  - BRAIN INJURY [None]
  - DYSPHEMIA [None]
  - HYPOAESTHESIA [None]
  - JAW DISORDER [None]
  - MENTAL IMPAIRMENT [None]
  - MUSCLE DISORDER [None]
  - VISUAL IMPAIRMENT [None]
